FAERS Safety Report 10195924 (Version 2)
Quarter: 2014Q3

REPORT INFORMATION
  Report Type: Spontaneous
  Country: US (occurrence: None)
  Receive Date: 20140522
  Receipt Date: 20140722
  Transmission Date: 20150326
  Serious: Yes (Hospitalization, Other)
  Sender: FDA-Public Use
  Company Number: US-ALKEM-000592

PATIENT
  Age: 51 Year
  Sex: Male
  Weight: 129.54 kg

DRUGS (3)
  1. TRAMADOL [Suspect]
     Active Substance: TRAMADOL
     Indication: DIABETIC NEUROPATHY
     Dosage: 50.00000000-MG-1.0AS NECESSARY / ORAL
     Route: 048
     Dates: end: 2013
  2. IRBESARTAN (IRBESARTAN) [Concomitant]
     Active Substance: IRBESARTAN
  3. GABAPENTIN. [Suspect]
     Active Substance: GABAPENTIN
     Indication: DIABETIC NEUROPATHY
     Dosage: 300.00000000-MG-1.0 DAYS /
     Route: 048
     Dates: end: 2013

REACTIONS (6)
  - Herpes zoster [None]
  - Condition aggravated [None]
  - Diabetic nephropathy [None]
  - Cellulitis [None]
  - Convulsion [None]
  - Vomiting [None]

NARRATIVE: CASE EVENT DATE: 201301
